FAERS Safety Report 9418345 (Version 2)
Quarter: 2013Q3

REPORT INFORMATION
  Report Type: Report from Study
  Country: JP (occurrence: JP)
  Receive Date: 20130725
  Receipt Date: 20130805
  Transmission Date: 20140515
  Serious: Yes (Other)
  Sender: FDA-Public Use
  Company Number: JP-ROCHE-1252478

PATIENT
  Age: 42 Year
  Sex: Male

DRUGS (6)
  1. MYCOPHENOLATE MOFETIL [Suspect]
     Indication: GRAFT VERSUS HOST DISEASE
     Dosage: DOSAGE IS UNCERTAIN.
     Route: 048
  2. MYCOPHENOLATE MOFETIL [Suspect]
     Indication: OFF LABEL USE
  3. CASPOFUNGIN ACETATE [Suspect]
     Indication: FUNGAL INFECTION
     Route: 042
  4. CASPOFUNGIN ACETATE [Suspect]
     Indication: FUNGAL INFECTION
     Route: 042
  5. TACROLIMUS HYDRATE [Concomitant]
     Indication: GRAFT VERSUS HOST DISEASE
     Dosage: DOSAGE IS UNCERTAIN.
     Route: 065
  6. PREDNISOLONE [Concomitant]
     Indication: GRAFT VERSUS HOST DISEASE
     Dosage: DOSAGE IS UNCERTAIN.
     Route: 065

REACTIONS (3)
  - Fungal infection [Unknown]
  - Febrile neutropenia [Unknown]
  - Hepatic enzyme increased [Unknown]
